FAERS Safety Report 5328133-6 (Version None)
Quarter: 2007Q2

REPORT INFORMATION
  Report Type: 
  Country: None (occurrence: None)
  Receive Date: 20070514
  Receipt Date: 20070503
  Transmission Date: 20071010
  Serious: Yes (Other)
  Sender: FDA-Public Use
  Company Number: 07H-163-0312560-00

PATIENT

DRUGS (7)
  1. DEXTROSE 70% [Suspect]
     Indication: PARENTERAL NUTRITION
     Dosage: 1.0 ML/HR
     Dates: start: 20070503, end: 20070503
  2. LIPIDS (LIPIDS NOS) [Concomitant]
  3. STERILE WATER (WATER FOR INJECTION ) [Concomitant]
  4. MAGNESIUM SULFATE [Concomitant]
  5. POTASSIUM ACETATE [Concomitant]
  6. SODIUM CHLORIDE 0.9% [Concomitant]
  7. POTASSIUM CHLORIDE [Concomitant]

REACTIONS (2)
  - BLOOD GLUCOSE DECREASED [None]
  - INCORRECT DOSE ADMINISTERED [None]
